FAERS Safety Report 7793508-2 (Version None)
Quarter: 2011Q4

REPORT INFORMATION
  Report Type: 
  Country: None (occurrence: None)
  Receive Date: 20111003
  Receipt Date: 20110921
  Transmission Date: 20120403
  Serious: Yes (Hospitalization)
  Sender: FDA-Public Use
  Company Number: US-SANOFI-AVENTIS-2011SA063506

PATIENT
  Age: 68 Year
  Sex: Female

DRUGS (3)
  1. SOLOSTAR [Suspect]
  2. LANTUS [Suspect]
     Dosage: DOSE:8 UNIT(S)
     Route: 058
     Dates: end: 20110101
  3. LANTUS [Suspect]
     Dosage: DOSE:18 UNIT(S)
     Route: 058
     Dates: start: 20110101

REACTIONS (5)
  - SPINAL DISORDER [None]
  - DYSPHONIA [None]
  - MOBILITY DECREASED [None]
  - BLOOD GLUCOSE INCREASED [None]
  - ASTHMA [None]
